FAERS Safety Report 25797005 (Version 1)
Quarter: 2025Q3

REPORT INFORMATION
  Report Type: Spontaneous
  Country: US (occurrence: None)
  Receive Date: 20250912
  Receipt Date: 20250912
  Transmission Date: 20251020
  Serious: Yes (Hospitalization)
  Sender: FDA-CTU
  Company Number: None

PATIENT
  Age: 16 Year
  Sex: Male

DRUGS (6)
  1. EPIDIOLEX [Suspect]
     Active Substance: CANNABIDIOL
     Indication: Lennox-Gastaut syndrome
     Dosage: 6 ML BID ORAL
     Route: 048
     Dates: start: 20231227
  2. VITAMIN D3 [Concomitant]
     Active Substance: CHOLECALCIFEROL
  3. GLYC0PYRR0LATE [Concomitant]
  4. 0NFI [Concomitant]
  5. ALLEGRA [Concomitant]
     Active Substance: FEXOFENADINE HYDROCHLORIDE
  6. NAN0VM - MULTI-VITAMIN [Concomitant]

REACTIONS (2)
  - COVID-19 [None]
  - Lower limb fracture [None]

NARRATIVE: CASE EVENT DATE: 20250910
